FAERS Safety Report 7978255-6 (Version None)
Quarter: 2011Q4

REPORT INFORMATION
  Report Type: 
  Country: None (occurrence: None)
  Receive Date: 20111206
  Receipt Date: 20111122
  Transmission Date: 20120403
  Serious: Yes (Life-Threatening)
  Sender: FDA-Public Use
  Company Number: DE-1188634

PATIENT
  Age: 47 Year
  Sex: Male

DRUGS (1)
  1. AZOPT [Suspect]
     Indication: GLAUCOMA
     Dosage: (1 GTT TWICE A DAY OPHTHALMIC)
     Route: 047
     Dates: start: 20040614, end: 20110801

REACTIONS (3)
  - DEPRESSION [None]
  - SUICIDAL IDEATION [None]
  - SUICIDE ATTEMPT [None]
